FAERS Safety Report 7657449-3 (Version None)
Quarter: 2011Q3

REPORT INFORMATION
  Report Type: 
  Country: None (occurrence: None)
  Receive Date: 20110804
  Receipt Date: 20110729
  Transmission Date: 20111222
  Serious: Yes (Other)
  Sender: FDA-Public Use
  Company Number: US-MYLANLABS-2011S1015743

PATIENT
  Sex: Female

DRUGS (8)
  1. METHADONE HYDROCHLORIDE [Concomitant]
  2. LYRICA [Suspect]
     Route: 048
     Dates: start: 20110101
  3. LYRICA [Suspect]
     Indication: NERVE INJURY
     Route: 048
     Dates: start: 20050101, end: 20100101
  4. LYRICA [Suspect]
     Indication: BURNING SENSATION
     Route: 048
     Dates: start: 20050101, end: 20100101
  5. LYRICA [Suspect]
     Route: 048
     Dates: start: 20100101, end: 20110101
  6. AMITRIPTYLINE HCL [Suspect]
     Dates: start: 20080101
  7. LYRICA [Suspect]
     Route: 048
     Dates: start: 20110101
  8. LYRICA [Suspect]
     Route: 048
     Dates: start: 20100101, end: 20110101

REACTIONS (4)
  - ABDOMINAL PAIN [None]
  - NAUSEA [None]
  - HAEMATOCHEZIA [None]
  - DYSPNOEA [None]
